FAERS Safety Report 5513988-2 (Version None)
Quarter: 2007Q4

REPORT INFORMATION
  Report Type: 
  Country: None (occurrence: None)
  Receive Date: 20071113
  Receipt Date: 20071107
  Transmission Date: 20080405
  Serious: Yes (Other)
  Sender: FDA-Public Use
  Company Number: PHEH2005US07182

PATIENT
  Age: 57 Year
  Sex: Female

DRUGS (2)
  1. ZOMETA [Suspect]
     Indication: BREAST CANCER METASTATIC
     Dosage: 4 MG, UNK
     Route: 042
     Dates: start: 20020101
  2. AREDIA [Suspect]
     Dates: start: 19990101, end: 20010101

REACTIONS (9)
  - BONE PAIN [None]
  - DEFORMITY [None]
  - ENDODONTIC PROCEDURE [None]
  - INFECTION [None]
  - OSTEOLYSIS [None]
  - OSTEOMYELITIS [None]
  - OSTEONECROSIS [None]
  - PAIN [None]
  - TOOTH EXTRACTION [None]
